FAERS Safety Report 6300791-9 (Version None)
Quarter: 2009Q3

REPORT INFORMATION
  Report Type: 
  Country: None (occurrence: None)
  Receive Date: 20090807
  Receipt Date: 20090730
  Transmission Date: 20100115
  Serious: Yes (Death, Hospitalization)
  Sender: FDA-Public Use
  Company Number: BE-BRISTOL-MYERS SQUIBB COMPANY-14483515

PATIENT
  Age: 79 Year
  Sex: Male
  Weight: 41 kg

DRUGS (3)
  1. CETUXIMAB [Suspect]
     Indication: GASTROOESOPHAGEAL CANCER
     Dosage: FIRST INF: 17-SEP-2008 MOST RECENT INF: 14-JAN-2009 PERMANANLTY DISC 28JAN09
     Route: 042
     Dates: start: 20080917, end: 20090128
  2. CISPLATIN [Suspect]
     Indication: GASTROOESOPHAGEAL CANCER
     Dosage: FIRST INF: 17-SEP-2008, D1 OF CYCLE MOST RECENT INF: 31-DEC-2008 PERMANENTLY DISC 31DEC08
     Route: 042
     Dates: start: 20080917, end: 20081231
  3. CAPECITABINE [Suspect]
     Indication: GASTROOESOPHAGEAL CANCER
     Dosage: DAY1-15 FIRST INFUSION: 17-SEP-2008 MOST RECENT INFUSION: 12-JAN-2009 PERMANENTLY DISC 12JAN09
     Route: 048
     Dates: start: 20080917, end: 20090112

REACTIONS (1)
  - DECREASED APPETITE [None]
